FAERS Safety Report 8799358 (Version 1)
Quarter: 2012Q4

REPORT INFORMATION
  Report Type: 
  Country: AT (occurrence: AT)
  Receive Date: 20120919
  Receipt Date: 20120919
  Transmission Date: 20130627
  Serious: Yes (Hospitalization)
  Sender: FDA-Public Use
  Company Number: AT-ASTELLAS-2012EU006746

PATIENT
  Age: 19 Year
  Sex: Female
  Weight: 55 kg

DRUGS (1)
  1. PROTOPIC [Suspect]
     Indication: CHEILITIS
     Dosage: 1 DF, UID/QD
     Route: 065
     Dates: start: 201102

REACTIONS (2)
  - Hydronephrosis [Recovered/Resolved]
  - Desmoid tumour [Recovered/Resolved]
